FAERS Safety Report 20946697 (Version 2)
Quarter: 2022Q2

REPORT INFORMATION
  Report Type: Spontaneous
  Country: US (occurrence: US)
  Receive Date: 20220610
  Receipt Date: 20220628
  Transmission Date: 20220721
  Serious: Yes (Other)
  Sender: FDA-Public Use
  Company Number: US-ORGANON-O2206USA000661

PATIENT
  Age: 70 Year
  Sex: Female

DRUGS (6)
  1. SINGULAIR [Suspect]
     Active Substance: MONTELUKAST SODIUM
     Indication: Asthma
     Dosage: 10 MG ONCE DAILY
     Route: 048
     Dates: start: 20220315, end: 20220330
  2. HYDROXYCHLOROQUINE [Concomitant]
     Active Substance: HYDROXYCHLOROQUINE
     Dosage: UNK
  3. VITAMINS NOS [Concomitant]
     Active Substance: VITAMINS
     Dosage: UNK
  4. ZYRTEC [Concomitant]
     Active Substance: CETIRIZINE HYDROCHLORIDE
     Dosage: UNK
  5. CALCIUM [Concomitant]
     Active Substance: CALCIUM
     Dosage: UNK
  6. AMLODIPINE [Concomitant]
     Active Substance: AMLODIPINE BESYLATE
     Dosage: UNK

REACTIONS (1)
  - Neuropathy peripheral [Not Recovered/Not Resolved]

NARRATIVE: CASE EVENT DATE: 20220330
